FAERS Safety Report 16970772 (Version 3)
Quarter: 2019Q4

REPORT INFORMATION
  Report Type: Spontaneous
  Country: AU (occurrence: AU)
  Receive Date: 20191029
  Receipt Date: 20191210
  Transmission Date: 20200122
  Serious: Yes (Hospitalization, Other)
  Sender: FDA-Public Use
  Company Number: AU-MYLANLABS-2019M1042073

PATIENT
  Age: 31 Year
  Sex: Male
  Weight: 115 kg

DRUGS (2)
  1. CLOZARIL [Suspect]
     Active Substance: CLOZAPINE
     Dosage: 250 MILLIGRAM
     Route: 048
     Dates: start: 20191127
  2. CLOZARIL [Suspect]
     Active Substance: CLOZAPINE
     Indication: SCHIZOPHRENIA
     Dosage: 250 MILLIGRAM
     Route: 048
     Dates: start: 20190409, end: 20190425

REACTIONS (14)
  - Monocyte count increased [Recovering/Resolving]
  - Chest pain [Unknown]
  - Pyrexia [Unknown]
  - Blood triglycerides increased [Not Recovered/Not Resolved]
  - Troponin increased [Recovering/Resolving]
  - Antipsychotic drug level below therapeutic [Unknown]
  - Eosinophilia [Not Recovered/Not Resolved]
  - White blood cell count increased [Recovering/Resolving]
  - Behaviour disorder [Unknown]
  - C-reactive protein increased [Recovering/Resolving]
  - Neutrophil count increased [Not Recovered/Not Resolved]
  - Myocarditis [Unknown]
  - Blood phosphorus increased [Unknown]
  - Blood creatine phosphokinase increased [Not Recovered/Not Resolved]

NARRATIVE: CASE EVENT DATE: 201904
